FAERS Safety Report 5078721-X (Version None)
Quarter: 2006Q3

REPORT INFORMATION
  Report Type: 
  Country: None (occurrence: None)
  Receive Date: 20060809
  Receipt Date: 20060809
  Transmission Date: 20061208
  Serious: Yes (Hospitalization, Disabling, Other)
  Sender: FDA-Public Use
  Company Number: None

PATIENT
  Sex: Female
  Weight: 113.3993 kg

DRUGS (2)
  1. PAXIL [Suspect]
     Indication: ANXIETY
     Dosage: 20 MG DAILY 3T ORAL
     Route: 048
     Dates: start: 20010101, end: 20060101
  2. PAXIL [Suspect]
     Indication: DEPRESSION
     Dosage: 20 MG DAILY 3T ORAL
     Route: 048
     Dates: start: 20010101, end: 20060101

REACTIONS (17)
  - ASTHENIA [None]
  - BREAST PAIN [None]
  - BRONCHITIS [None]
  - COUGH [None]
  - DEPRESSION [None]
  - DIABETES MELLITUS INADEQUATE CONTROL [None]
  - DISCOMFORT [None]
  - DIZZINESS [None]
  - ELECTROCARDIOGRAM ABNORMAL [None]
  - HEART RATE INCREASED [None]
  - HYPERTENSION [None]
  - INSOMNIA [None]
  - MIGRAINE [None]
  - NECK PAIN [None]
  - OESOPHAGITIS [None]
  - PARAESTHESIA [None]
  - SINUSITIS [None]
